FAERS Safety Report 8116808-5 (Version None)
Quarter: 2012Q1

REPORT INFORMATION
  Report Type: 
  Country: None (occurrence: None)
  Receive Date: 20120206
  Receipt Date: 20120131
  Transmission Date: 20120608
  Serious: Yes (Other)
  Sender: FDA-Public Use
  Company Number: PHHY2011FR105526

PATIENT
  Age: 77 Year
  Sex: Female
  Weight: 53 kg

DRUGS (2)
  1. ZOLEDRONOC ACID [Suspect]
     Dosage: 5 MG, UNK
     Route: 042
     Dates: start: 20111001
  2. ZOLEDRONOC ACID [Suspect]
     Indication: OSTEOPOROTIC FRACTURE
     Dosage: 5 MG, UNK
     Route: 042
     Dates: start: 20100101

REACTIONS (11)
  - RED BLOOD CELL SEDIMENTATION RATE INCREASED [None]
  - HYPOCALCAEMIA [None]
  - DYSSTASIA [None]
  - HYPOKINESIA [None]
  - INFLUENZA LIKE ILLNESS [None]
  - TREMOR [None]
  - WHITE BLOOD CELL COUNT INCREASED [None]
  - AMNESIA [None]
  - CREATININE RENAL CLEARANCE DECREASED [None]
  - C-REACTIVE PROTEIN INCREASED [None]
  - FATIGUE [None]
